FAERS Safety Report 20761440 (Version 1)
Quarter: 2022Q2

REPORT INFORMATION
  Report Type: Other
  Country: GB (occurrence: GB)
  Receive Date: 20220428
  Receipt Date: 20220428
  Transmission Date: 20220721
  Serious: Yes (Other)
  Sender: FDA-Public Use
  Company Number: GB-MHRA-MED-202204132248196490-OWH3U

PATIENT
  Age: 27 Year
  Sex: Female
  Weight: 60 kg

DRUGS (1)
  1. SERTRALINE [Suspect]
     Active Substance: SERTRALINE HYDROCHLORIDE
     Indication: Product used for unknown indication
     Dosage: 50 MILLIGRAM, QD, 50MG ONCE A DAY IN MORNING
     Route: 065

REACTIONS (3)
  - Suicidal ideation [Recovered/Resolved]
  - Withdrawal syndrome [Unknown]
  - Product dose omission issue [Unknown]
